FAERS Safety Report 15277309 (Version 1)
Quarter: 2018Q3

REPORT INFORMATION
  Report Type: Spontaneous
  Country: US (occurrence: US)
  Receive Date: 20180814
  Receipt Date: 20180814
  Transmission Date: 20181010
  Serious: Yes (Other)
  Sender: FDA-Public Use
  Company Number: US-ELI_LILLY_AND_COMPANY-US201808002608

PATIENT
  Sex: Female

DRUGS (2)
  1. HUMALOG [Suspect]
     Active Substance: INSULIN LISPRO
     Dosage: UNK UNK, OTHER (INCREASE HER DOSE TO 1 AND A HALF UNITS OR 2 UNITS)
     Route: 058
  2. HUMALOG [Suspect]
     Active Substance: INSULIN LISPRO
     Indication: PRODUCT USED FOR UNKNOWN INDICATION
     Dosage: UNK UNK, OTHER (A CARB RATIO OF 1 TO 8 IN THE DAY AND 1 TO 10 IN THE EVENING)
     Route: 058

REACTIONS (4)
  - Blood glucose decreased [Unknown]
  - Diabetic ketoacidosis [Recovered/Resolved]
  - Drug ineffective [Unknown]
  - Blood glucose increased [Unknown]
